FAERS Safety Report 15492354 (Version 2)
Quarter: 2018Q4

REPORT INFORMATION
  Report Type: Spontaneous
  Country: US (occurrence: US)
  Receive Date: 20181012
  Receipt Date: 20181016
  Transmission Date: 20190205
  Serious: No
  Sender: FDA-Public Use
  Company Number: US-AMGEN-USASP2018140698

PATIENT
  Age: 55 Year
  Sex: Female

DRUGS (1)
  1. XGEVA [Suspect]
     Active Substance: DENOSUMAB
     Indication: PROPHYLAXIS
     Dosage: 120 MG, Q3MO
     Route: 065
     Dates: start: 201610

REACTIONS (4)
  - Malaise [Unknown]
  - Off label use [Unknown]
  - Diarrhoea [Unknown]
  - Pain [Unknown]
